FAERS Safety Report 23419690 (Version 2)
Quarter: 2024Q1

REPORT INFORMATION
  Report Type: Spontaneous
  Country: US (occurrence: US)
  Receive Date: 20240119
  Receipt Date: 20240203
  Transmission Date: 20240410
  Serious: Yes (Life-Threatening, Hospitalization, Other)
  Sender: FDA-Public Use
  Company Number: US-MLMSERVICE-20240102-4751573-1

PATIENT
  Age: 50 Year
  Sex: Male

DRUGS (3)
  1. PREDNISONE [Suspect]
     Active Substance: PREDNISONE
     Indication: Product used for unknown indication
     Dosage: UNK
     Route: 065
  2. REGORAFENIB [Concomitant]
     Active Substance: REGORAFENIB
     Indication: Leiomyosarcoma
     Dosage: UNK
     Route: 065
  3. REGORAFENIB [Concomitant]
     Active Substance: REGORAFENIB
     Indication: Osteosarcoma

REACTIONS (4)
  - Pneumonia pseudomonal [Recovering/Resolving]
  - Sepsis [Recovering/Resolving]
  - Hypoxia [Recovering/Resolving]
  - Lactic acidosis [Recovering/Resolving]
